FAERS Safety Report 8972200 (Version 6)
Quarter: 2014Q3

REPORT INFORMATION
  Report Type: Spontaneous
  Country: US (occurrence: US)
  Receive Date: 20121218
  Receipt Date: 20140729
  Transmission Date: 20150326
  Serious: Yes (Hospitalization)
  Sender: FDA-Public Use
  Company Number: US-009507513-1212USA005272

PATIENT
  Sex: Male

DRUGS (1)
  1. PROPECIA [Suspect]
     Active Substance: FINASTERIDE
     Indication: ALOPECIA
     Dosage: 1 MG, DAILY
     Route: 048
     Dates: start: 200412, end: 20080530

REACTIONS (32)
  - Ejaculation disorder [Unknown]
  - Erectile dysfunction [Unknown]
  - Scrotal pain [Unknown]
  - Anxiety [Unknown]
  - Facial lesion excision [Unknown]
  - Back injury [Unknown]
  - Dysuria [Unknown]
  - Testicular pain [Unknown]
  - Sexual dysfunction [Unknown]
  - Cognitive disorder [Unknown]
  - Dislocation of vertebra [Unknown]
  - Depression [Unknown]
  - Fibrosis [Unknown]
  - Incontinence [Unknown]
  - Panic attack [Unknown]
  - Influenza [Unknown]
  - Libido decreased [Unknown]
  - Testicular operation [Unknown]
  - Dysuria [Unknown]
  - Plastic surgery to the face [Unknown]
  - Skin lesion [Unknown]
  - Inguinal hernia [Unknown]
  - Breast enlargement [Unknown]
  - Groin pain [Unknown]
  - Inguinal hernia repair [Unknown]
  - Testicular mass [Unknown]
  - Pelvic discomfort [Unknown]
  - Testicular pain [Unknown]
  - Animal bite [Unknown]
  - Hair transplant [Unknown]
  - Swelling [Unknown]
  - Semen volume decreased [Unknown]

NARRATIVE: CASE EVENT DATE: 200412
